FAERS Safety Report 8593605 (Version 2)
Quarter: 2013Q3

REPORT INFORMATION
  Report Type: Spontaneous
  Country: US (occurrence: US)
  Receive Date: 20120604
  Receipt Date: 20130722
  Transmission Date: 20140515
  Serious: Yes (Hospitalization, Disabling)
  Sender: FDA-Public Use
  Company Number: US-ASTRAZENECA-2012SE34981

PATIENT
  Age: 52 Year
  Sex: Female
  Weight: 72.6 kg

DRUGS (6)
  1. NEXIUM [Suspect]
     Indication: GASTROOESOPHAGEAL REFLUX DISEASE
     Route: 048
     Dates: start: 1998, end: 2008
  2. PRILOSEC [Suspect]
     Route: 048
     Dates: start: 1994, end: 1997
  3. PRILOSEC OTC [Suspect]
     Dosage: ONE OR TWO A  DAY
     Route: 048
     Dates: start: 2008
  4. ROLAIDS [Concomitant]
     Dosage: AS NEEDED
  5. PREMPRO [Concomitant]
     Dosage: LOWEST DOSE 6.25
     Dates: start: 2005, end: 2008
  6. FIORICET [Concomitant]
     Indication: TENSION HEADACHE

REACTIONS (7)
  - Hypertension [Unknown]
  - Gallbladder disorder [Unknown]
  - Breast disorder [Unknown]
  - Osteoarthritis [Unknown]
  - Osteoporosis [Unknown]
  - Multiple fractures [Unknown]
  - Foot fracture [Unknown]
